FAERS Safety Report 19933380 (Version 1)
Quarter: 2021Q4

REPORT INFORMATION
  Report Type: Spontaneous
  Country: US (occurrence: US)
  Receive Date: 20211006
  Receipt Date: 20211006
  Transmission Date: 20220303
  Serious: Yes (Hospitalization)
  Sender: FDA-Public Use
  Company Number: None

PATIENT
  Age: 61 Year
  Sex: Female

DRUGS (28)
  1. AVONEX PEN [Suspect]
     Active Substance: INTERFERON BETA-1A
     Indication: Multiple sclerosis
     Dosage: ?          OTHER DOSE:1 PEN;
     Route: 030
     Dates: start: 20140701
  2. AMLODIPINE [Concomitant]
     Active Substance: AMLODIPINE BESYLATE
  3. AMOXICILLIN\CLAVULANATE POTASSIUM [Concomitant]
     Active Substance: AMOXICILLIN\CLAVULANATE POTASSIUM
  4. ASPIRIN [Concomitant]
     Active Substance: ASPIRIN
  5. BUMETANIDE [Concomitant]
     Active Substance: BUMETANIDE
  6. CELECOXIB [Concomitant]
     Active Substance: CELECOXIB
  7. CEPHALEXIN [Concomitant]
     Active Substance: CEPHALEXIN
  8. CLINDAMYCIN [Concomitant]
     Active Substance: CLINDAMYCIN
  9. CLOBETASOL CRE [Concomitant]
  10. CLONAZEPAM [Suspect]
     Active Substance: CLONAZEPAM
  11. DULOXETINE [Concomitant]
     Active Substance: DULOXETINE
  12. LAMOTRIGINE [Concomitant]
     Active Substance: LAMOTRIGINE
  13. LINZESS [Concomitant]
     Active Substance: LINACLOTIDE
  14. LUBIPROSTONE [Concomitant]
     Active Substance: LUBIPROSTONE
  15. MONTELUKAST [Concomitant]
     Active Substance: MONTELUKAST SODIUM
  16. OXYCODONE [Concomitant]
     Active Substance: OXYCODONE
  17. OZEMPIC [Concomitant]
     Active Substance: SEMAGLUTIDE
  18. PANTOPRAZOLE [Concomitant]
     Active Substance: PANTOPRAZOLE
  19. PHENAZOPYRID [Concomitant]
  20. PHENTERMINE [Concomitant]
     Active Substance: PHENTERMINE
  21. POT CHLORIDE ER [Concomitant]
  22. PREDNISONE [Concomitant]
     Active Substance: PREDNISONE
  23. REPATHA [Concomitant]
     Active Substance: EVOLOCUMAB
  24. SENNA [Concomitant]
     Active Substance: SENNA LEAF\SENNOSIDES\SENNOSIDES A AND B
  25. TIZANIDINE [Concomitant]
     Active Substance: TIZANIDINE
  26. TRAMADOL HCL [Concomitant]
     Active Substance: TRAMADOL HYDROCHLORIDE
  27. VITAMIN D [Concomitant]
     Active Substance: VITAMIN D NOS
  28. ZOLPIDEM [Concomitant]
     Active Substance: ZOLPIDEM TARTRATE

REACTIONS (1)
  - Therapy interrupted [None]

NARRATIVE: CASE EVENT DATE: 20210906
